FAERS Safety Report 6112363-X (Version None)
Quarter: 2009Q1

REPORT INFORMATION
  Report Type: 
  Country: None (occurrence: None)
  Receive Date: 20090311
  Receipt Date: 20090311
  Transmission Date: 20090719
  Serious: Yes (Life-Threatening, Hospitalization)
  Sender: FDA-Public Use
  Company Number: None

PATIENT
  Sex: Male
  Weight: 79.3795 kg

DRUGS (1)
  1. COTRIM DS [Suspect]
     Dosage: 1 TABLET TWICE DAILY MOUTH
     Route: 048
     Dates: start: 20090202, end: 20090209

REACTIONS (14)
  - BLOOD PRESSURE FLUCTUATION [None]
  - CHILLS [None]
  - DIZZINESS [None]
  - DYSPHAGIA [None]
  - FATIGUE [None]
  - PLATELET COUNT DECREASED [None]
  - PNEUMONIA [None]
  - PULSE ABNORMAL [None]
  - PYREXIA [None]
  - RASH [None]
  - RED BLOOD CELL COUNT DECREASED [None]
  - RENAL IMPAIRMENT [None]
  - VOMITING [None]
  - WHITE BLOOD CELL COUNT DECREASED [None]
